FAERS Safety Report 24952894 (Version 1)
Quarter: 2025Q1

REPORT INFORMATION
  Report Type: Spontaneous
  Country: US (occurrence: US)
  Receive Date: 20250211
  Receipt Date: 20250211
  Transmission Date: 20250408
  Serious: No
  Sender: ABBVIE
  Company Number: US-ABBVIE-6127888

PATIENT

DRUGS (1)
  1. URSO [Suspect]
     Active Substance: URSODIOL
     Indication: Primary biliary cholangitis
     Route: 065

REACTIONS (2)
  - Influenza [Unknown]
  - Blood pressure increased [Unknown]
